FAERS Safety Report 7349638-2 (Version None)
Quarter: 2011Q1

REPORT INFORMATION
  Report Type: 
  Country: None (occurrence: None)
  Receive Date: 20110314
  Receipt Date: 20100519
  Transmission Date: 20110831
  Serious: Yes (Hospitalization)
  Sender: FDA-Public Use
  Company Number: A0861365A

PATIENT
  Sex: Female

DRUGS (1)
  1. AUGMENTIN '125' [Suspect]
     Indication: CELLULITIS
     Dosage: 875MG TWICE PER DAY
     Route: 048
     Dates: start: 20100401, end: 20100501

REACTIONS (1)
  - DRUG INEFFECTIVE [None]
